FAERS Safety Report 9765374 (Version 1)
Quarter: 2013Q4

REPORT INFORMATION
  Report Type: Spontaneous
  Country: US (occurrence: US)
  Receive Date: 20131217
  Receipt Date: 20131217
  Transmission Date: 20140711
  Serious: No
  Sender: FDA-Public Use
  Company Number: US-BIOGENIDEC-2013BI115334

PATIENT
  Age: 60 Year
  Sex: Female

DRUGS (1)
  1. TECFIDERA [Suspect]
     Indication: RELAPSING-REMITTING MULTIPLE SCLEROSIS
     Dates: start: 20130701, end: 20130731

REACTIONS (4)
  - Gastrooesophageal reflux disease [Recovered/Resolved]
  - Food allergy [Recovered/Resolved]
  - Irritable bowel syndrome [Recovered/Resolved]
  - Gastrointestinal disorder [Recovered/Resolved]
